FAERS Safety Report 5571109-4 (Version None)
Quarter: 2007Q4

REPORT INFORMATION
  Report Type: 
  Country: None (occurrence: None)
  Receive Date: 20071221
  Receipt Date: 20071217
  Transmission Date: 20080405
  Serious: Yes (Hospitalization, Other)
  Sender: FDA-Public Use
  Company Number: US-MERCK-0707USA02704

PATIENT
  Age: 62 Year
  Sex: Female

DRUGS (4)
  1. FOSAMAX [Suspect]
     Indication: OSTEOPOROSIS
     Route: 048
     Dates: start: 20030601, end: 20070101
  2. [THERAPY UNSPECIFIED] [Concomitant]
     Route: 065
     Dates: start: 20020101
  3. ARMOUR THYROID TABLETS [Concomitant]
     Route: 065
  4. FOSAMAX PLUS D [Suspect]
     Indication: OSTEOPOROSIS
     Route: 048
     Dates: end: 20070302

REACTIONS (3)
  - DIABETES MELLITUS [None]
  - HAEMOLYTIC ANAEMIA [None]
  - OSTEONECROSIS [None]
